FAERS Safety Report 11130247 (Version 1)
Quarter: 2015Q2

REPORT INFORMATION
  Report Type: Spontaneous
  Country: US (occurrence: US)
  Receive Date: 20150522
  Receipt Date: 20150522
  Transmission Date: 20150821
  Serious: Yes (Other)
  Sender: FDA-Public Use
  Company Number: US-CIPLA LTD.-2015US04067

PATIENT

DRUGS (4)
  1. BEVACIZUMAB [Suspect]
     Active Substance: BEVACIZUMAB
     Indication: OSTEOSARCOMA
     Dosage: 15 MG/KG, EVERY 21 DAYS
     Route: 042
  2. IRINOTECAN [Suspect]
     Active Substance: IRINOTECAN
     Indication: OSTEOSARCOMA
     Dosage: 30 MG/M2, QD FOR 5 CONSECUTIVE DAYS OF 21 DAY CYCEL
     Route: 042
  3. VINCRISTINE [Suspect]
     Active Substance: VINCRISTINE
     Indication: OSTEOSARCOMA
     Dosage: 1.5 MG/M2, ON DAYS 1 AND 8 OF THE 21 DAYS CYCLE
     Route: 042
  4. TEMOZOLOMIDE. [Suspect]
     Active Substance: TEMOZOLOMIDE
     Indication: OSTEOSARCOMA
     Dosage: 100 MG/M2, ON DAYS 1 TO 5 OF THE 21 DAYS CYCLE
     Route: 048

REACTIONS (1)
  - Disease progression [Unknown]
